FAERS Safety Report 5871737-2 (Version None)
Quarter: 2008Q3

REPORT INFORMATION
  Report Type: 
  Country: None (occurrence: None)
  Receive Date: 20080904
  Receipt Date: 20080904
  Transmission Date: 20090109
  Serious: Yes (Other)
  Sender: FDA-Public Use
  Company Number: None

PATIENT
  Age: 63 Year
  Sex: Male
  Weight: 81.6475 kg

DRUGS (2)
  1. CIPRO [Suspect]
     Indication: RENAL STONE REMOVAL
     Dosage: 1 TABLET TWICE A DAY  3 DAYS; 1 TABLET TWICE A DAY 5 DAYS
     Dates: start: 20080529, end: 20080608
  2. CIPRO [Suspect]
     Indication: RENAL STONE REMOVAL
     Dosage: 1 TABLET TWICE A DAY  3 DAYS; 1 TABLET TWICE A DAY 5 DAYS
     Dates: start: 20080804, end: 20080809

REACTIONS (5)
  - ARTHRALGIA [None]
  - DYSSTASIA [None]
  - PAIN IN EXTREMITY [None]
  - PARAESTHESIA [None]
  - TENDON PAIN [None]
